FAERS Safety Report 11776605 (Version 4)
Quarter: 2016Q1

REPORT INFORMATION
  Report Type: Spontaneous
  Country: FR (occurrence: FR)
  Receive Date: 20151125
  Receipt Date: 20160204
  Transmission Date: 20160525
  Serious: Yes (Death, Hospitalization)
  Sender: FDA-Public Use
  Company Number: FR-ACTELION-A-CH2015-127622

PATIENT
  Age: 84 Year
  Sex: Male

DRUGS (1)
  1. VELETRI [Suspect]
     Active Substance: EPOPROSTENOL
     Indication: PULMONARY ARTERIAL HYPERTENSION
     Dosage: 1.5 MG, UNK
     Route: 042
     Dates: start: 201507

REACTIONS (5)
  - Colon cancer [Fatal]
  - Iron deficiency anaemia [Fatal]
  - Prostatic operation [Unknown]
  - Pulmonary arterial hypertension [Fatal]
  - Condition aggravated [Fatal]
